FAERS Safety Report 6822682-7 (Version None)
Quarter: 2010Q3

REPORT INFORMATION
  Report Type: 
  Country: None (occurrence: None)
  Receive Date: 20100708
  Receipt Date: 20100630
  Transmission Date: 20110219
  Serious: Yes (Other)
  Sender: FDA-Public Use
  Company Number: BR-PFIZER INC-2010082375

PATIENT
  Age: 59 Year
  Sex: Female
  Weight: 66 kg

DRUGS (1)
  1. ZITHROMAX [Suspect]
     Dosage: 2 MG/ML, INFUSION FOR 1 HOUR
     Route: 042
     Dates: start: 20100421, end: 20100421

REACTIONS (3)
  - FEELING HOT [None]
  - NAUSEA [None]
  - VISION BLURRED [None]
